FAERS Safety Report 8040637-4 (Version None)
Quarter: 2012Q1

REPORT INFORMATION
  Report Type: 
  Country: None (occurrence: None)
  Receive Date: 20120111
  Receipt Date: 20120104
  Transmission Date: 20120608
  Serious: No
  Sender: FDA-Public Use
  Company Number: US-AMGEN-USASP2011068287

PATIENT
  Age: 42 Year
  Sex: Male

DRUGS (2)
  1. ENBREL [Suspect]
     Indication: RHEUMATOID ARTHRITIS
     Dosage: 50 MG, QWK
     Dates: start: 20051108
  2. METHOTREXATE [Concomitant]
     Dosage: 6 MG, UNK
     Dates: start: 20050101

REACTIONS (3)
  - FEELING JITTERY [None]
  - INJECTION SITE PRURITUS [None]
  - ABDOMINAL DISCOMFORT [None]
